FAERS Safety Report 9733473 (Version 1)
Quarter: 2013Q4

REPORT INFORMATION
  Report Type: Spontaneous
  Country: US (occurrence: US)
  Receive Date: 20131205
  Receipt Date: 20131205
  Transmission Date: 20140711
  Serious: Yes (Hospitalization)
  Sender: FDA-Public Use
  Company Number: US-BIOGENIDEC-2013BI116453

PATIENT
  Age: 51 Year
  Sex: Female

DRUGS (2)
  1. AVONEX [Suspect]
     Indication: MULTIPLE SCLEROSIS
     Route: 030
     Dates: start: 2003, end: 2010
  2. AMANTADINE [Concomitant]
     Indication: FATIGUE

REACTIONS (6)
  - Osteoarthritis [Recovered/Resolved]
  - Uterine cancer [Recovered/Resolved]
  - Joint injury [Recovered/Resolved]
  - Mobility decreased [Not Recovered/Not Resolved]
  - Hypertension [Not Recovered/Not Resolved]
  - Muscle spasms [Not Recovered/Not Resolved]
